FAERS Safety Report 10248164 (Version 1)
Quarter: 2014Q2

REPORT INFORMATION
  Report Type: Spontaneous
  Country: DE (occurrence: DE)
  Receive Date: 20140619
  Receipt Date: 20140619
  Transmission Date: 20141212
  Serious: Yes (Other)
  Sender: FDA-Public Use
  Company Number: DE-MYLANLABS-2014S1013541

PATIENT
  Age: 54 Year
  Sex: Female

DRUGS (4)
  1. CARVEDILOL [Suspect]
     Route: 048
  2. RAMIPRIL [Interacting]
     Route: 048
  3. SPIRONOLACTON [Interacting]
     Route: 048
  4. FUMADERM [Interacting]
     Route: 048

REACTIONS (3)
  - Diarrhoea [Not Recovered/Not Resolved]
  - Vasodilatation [Not Recovered/Not Resolved]
  - Drug interaction [Not Recovered/Not Resolved]
